FAERS Safety Report 4700335-9 (Version None)
Quarter: 2005Q2

REPORT INFORMATION
  Report Type: 
  Country: None (occurrence: None)
  Receive Date: 20050627
  Receipt Date: 20050322
  Transmission Date: 20051028
  Serious: Yes (Hospitalization, Disabling, Other)
  Sender: FDA-Public Use
  Company Number: US-MERCK-0503USA04200

PATIENT
  Age: 61 Year
  Sex: Male
  Weight: 91 kg

DRUGS (16)
  1. ZOCOR [Concomitant]
     Route: 065
     Dates: start: 20020910, end: 20040818
  2. ACTOS [Concomitant]
     Indication: DIABETES MELLITUS
     Route: 065
  3. GEMFIBROZIL [Concomitant]
     Indication: BLOOD CHOLESTEROL INCREASED
     Route: 065
     Dates: start: 20000821, end: 20021009
  4. NEURONTIN [Concomitant]
     Indication: PAIN
     Route: 065
  5. GLUCOPHAGE [Concomitant]
     Indication: DIABETES MELLITUS
     Route: 065
  6. NORVASC [Concomitant]
     Indication: HYPERTENSION
     Route: 065
     Dates: start: 20001018, end: 20021220
  7. MECLIZINE [Concomitant]
     Indication: HYPERTENSION
     Route: 065
  8. GLUCOTROL [Concomitant]
     Indication: DIABETES MELLITUS
     Route: 065
  9. HYDROCHLOROTHIAZIDE [Concomitant]
     Route: 065
     Dates: start: 20010423, end: 20041025
  10. BUTALBITAL [Concomitant]
     Route: 065
  11. ACETAMINOPHEN [Concomitant]
     Route: 065
  12. MONOPRIL [Concomitant]
     Route: 065
     Dates: start: 19990216, end: 20010217
  13. ENALAPRIL MALEATE [Concomitant]
     Route: 065
     Dates: start: 20020303, end: 20020404
  14. ZITHROMAX [Concomitant]
     Route: 065
  15. VIOXX [Suspect]
     Indication: ARTHRITIS
     Route: 048
     Dates: start: 20010201, end: 20030610
  16. VIOXX [Suspect]
     Indication: PAIN
     Route: 048
     Dates: start: 20010201, end: 20030610

REACTIONS (4)
  - ARTHROPATHY [None]
  - CARDIAC DISORDER [None]
  - MYOCARDIAL INFARCTION [None]
  - VERTIGO POSITIONAL [None]
